FAERS Safety Report 8541508-7 (Version None)
Quarter: 2012Q3

REPORT INFORMATION
  Report Type: 
  Country: None (occurrence: None)
  Receive Date: 20120726
  Receipt Date: 20110919
  Transmission Date: 20120928
  Serious: No
  Sender: FDA-Public Use
  Company Number: US-ASTRAZENECA-2011SE56360

PATIENT
  Age: 60 Year
  Sex: Female
  Weight: 54 kg

DRUGS (5)
  1. LAMICTAL [Concomitant]
  2. SEROQUEL [Suspect]
     Route: 048
  3. SEROQUEL [Suspect]
     Indication: DEPRESSION
     Route: 048
  4. SEROQUEL [Suspect]
     Route: 048
  5. PROZAC [Concomitant]

REACTIONS (4)
  - OFF LABEL USE [None]
  - SLEEP DISORDER [None]
  - INAPPROPRIATE SCHEDULE OF DRUG ADMINISTRATION [None]
  - WEIGHT INCREASED [None]
